FAERS Safety Report 24303816 (Version 1)
Quarter: 2024Q3

REPORT INFORMATION
  Report Type: Spontaneous
  Country: CN (occurrence: CN)
  Receive Date: 20240910
  Receipt Date: 20240910
  Transmission Date: 20241016
  Serious: Yes (Hospitalization)
  Sender: FRESENIUS KABI
  Company Number: CN-FreseniusKabi-FK202413406

PATIENT
  Age: 76 Year
  Sex: Male
  Weight: 39 kg

DRUGS (2)
  1. EGG PHOSPHOLIPIDS\GLYCERIN\MEDIUM-CHAIN TRIGLYCERIDES\SOYBEAN OIL [Suspect]
     Active Substance: EGG PHOSPHOLIPIDS\GLYCERIN\MEDIUM-CHAIN TRIGLYCERIDES\SOYBEAN OIL
     Indication: Fluid replacement
     Dosage: FORM OF ADMINISTRATION: INJECTION
     Route: 041
     Dates: start: 20240816, end: 20240817
  2. AMINO ACIDS, SOURCE UNSPECIFIED [Suspect]
     Active Substance: AMINO ACIDS, SOURCE UNSPECIFIED
     Indication: Fluid replacement
     Dosage: INJECTION
     Route: 041
     Dates: start: 20240816, end: 20240817

REACTIONS (9)
  - Back pain [Recovering/Resolving]
  - Myocardial ischaemia [Recovering/Resolving]
  - Sinus tachycardia [Recovering/Resolving]
  - Chest discomfort [Recovering/Resolving]
  - Hiccups [Recovering/Resolving]
  - Asthenia [Recovering/Resolving]
  - Dyspnoea [Recovering/Resolving]
  - Decreased appetite [Recovering/Resolving]
  - Poor quality sleep [Recovering/Resolving]

NARRATIVE: CASE EVENT DATE: 20240816
